FAERS Safety Report 9732532 (Version 1)
Quarter: 2013Q4

REPORT INFORMATION
  Report Type: Spontaneous
  Country: US (occurrence: US)
  Receive Date: 20131205
  Receipt Date: 20131205
  Transmission Date: 20140711
  Serious: Yes (Hospitalization)
  Sender: FDA-Public Use
  Company Number: US-BAYER-2013-147433

PATIENT
  Age: 44 Year
  Sex: Female
  Weight: 56.24 kg

DRUGS (8)
  1. YASMIN [Suspect]
     Indication: ENDOMETRIOSIS
  2. NAPROXEN [Concomitant]
     Dosage: 500 MG, BID, PRN, UNK
     Route: 048
  3. DARVOCET [Concomitant]
     Indication: PAIN
     Dosage: UNK UNK, PRN
  4. PREDNISONE [Concomitant]
     Dosage: 10 MG, DAILY
     Route: 048
  5. NASACORT [Concomitant]
  6. MULTIVITAMIN [Concomitant]
     Dosage: ONE A DAY
  7. FISH OIL [Concomitant]
     Dosage: 1000 MG A DAY, UNK
  8. MIRALAX [Concomitant]

REACTIONS (2)
  - Pulmonary embolism [Recovered/Resolved]
  - Deep vein thrombosis [None]
